FAERS Safety Report 21914451 (Version 1)
Quarter: 2023Q1

REPORT INFORMATION
  Report Type: Spontaneous
  Country: US (occurrence: US)
  Receive Date: 20230126
  Receipt Date: 20230126
  Transmission Date: 20230417
  Serious: Yes (Other)
  Sender: FDA-Public Use
  Company Number: US-ABBVIE-4281586

PATIENT
  Age: 60 Year
  Sex: Male

DRUGS (13)
  1. LUPRON [Suspect]
     Active Substance: LEUPROLIDE ACETATE
     Indication: Hormone therapy
     Route: 058
  2. ZINC [Concomitant]
     Active Substance: ZINC
     Indication: Product used for unknown indication
  3. RYBELSUS [Concomitant]
     Active Substance: SEMAGLUTIDE
     Indication: Product used for unknown indication
     Route: 048
  4. IODINE [Concomitant]
     Active Substance: IODINE
     Indication: Product used for unknown indication
  5. MAGNESIUM [Concomitant]
     Active Substance: MAGNESIUM
     Indication: Product used for unknown indication
  6. VITAMIN D3 [Concomitant]
     Active Substance: CHOLECALCIFEROL
     Indication: Product origin unknown
  7. CORTISONE [Concomitant]
     Active Substance: CORTISONE
     Indication: Steroid therapy
     Dates: start: 2022
  8. FLAXSEED [Concomitant]
     Active Substance: FLAX SEED
     Indication: Product used for unknown indication
  9. FIRMAGON [Concomitant]
     Active Substance: DEGARELIX ACETATE
     Indication: Hormone therapy
     Route: 058
     Dates: start: 2022
  10. TRELSTAR (TRIPTORELIN EMBONATE) [Concomitant]
     Indication: Hormone therapy
  11. XTANDI [Concomitant]
     Active Substance: ENZALUTAMIDE
     Indication: Hormone therapy
     Route: 048
     Dates: start: 2022
  12. FISH OIL [Concomitant]
     Active Substance: FISH OIL
     Indication: Product used for unknown indication
  13. BORON [Concomitant]
     Active Substance: BORON
     Indication: Product used for unknown indication

REACTIONS (15)
  - Catatonia [Not Recovered/Not Resolved]
  - Homosexuality [Recovered/Resolved]
  - Dissociation [Not Recovered/Not Resolved]
  - Inflammation [Not Recovered/Not Resolved]
  - Dysuria [Not Recovered/Not Resolved]
  - Diarrhoea [Not Recovered/Not Resolved]
  - Increased appetite [Not Recovered/Not Resolved]
  - Personality change [Not Recovered/Not Resolved]
  - Testicular swelling [Not Recovered/Not Resolved]
  - Depression [Not Recovered/Not Resolved]
  - Peripheral swelling [Not Recovered/Not Resolved]
  - Feeling abnormal [Not Recovered/Not Resolved]
  - Blood testosterone abnormal [Not Recovered/Not Resolved]
  - Penile size reduced [Not Recovered/Not Resolved]
  - Weight increased [Not Recovered/Not Resolved]
